FAERS Safety Report 7239191-6 (Version None)
Quarter: 2011Q1

REPORT INFORMATION
  Report Type: 
  Country: None (occurrence: None)
  Receive Date: 20110121
  Receipt Date: 20101118
  Transmission Date: 20110831
  Serious: Yes (Hospitalization, Other)
  Sender: FDA-Public Use
  Company Number: PHHY2010JP56545

PATIENT
  Sex: Female
  Weight: 46 kg

DRUGS (24)
  1. OXYCONTIN [Concomitant]
     Indication: BREAST CANCER
     Dosage: 20 MG, UNK
     Route: 048
     Dates: start: 20090918, end: 20100304
  2. STAYBLA [Concomitant]
     Dosage: 0.2 MG, UNK
     Route: 048
     Dates: start: 20060529
  3. DUROTEP [Concomitant]
     Indication: BREAST CANCER
     Dosage: 2.1 G, UNK
     Dates: start: 20100305
  4. ENDOXAN [Concomitant]
     Indication: BREAST CANCER
     Dosage: 100 MG, UNK
     Route: 048
     Dates: start: 20070118, end: 20090617
  5. TELESMIN [Concomitant]
     Dosage: 200 MG, UNK
     Route: 048
     Dates: start: 20050802, end: 20090917
  6. JUZENTAIHOTO [Concomitant]
     Dosage: 7.5 G, UNK
     Route: 048
     Dates: start: 20060529, end: 20090221
  7. ALOSENN [Concomitant]
     Dosage: 1 G, UNK
     Route: 048
     Dates: start: 20030802
  8. PARIET [Concomitant]
     Dosage: 10 MG, UNK
     Route: 048
     Dates: start: 20061204
  9. ZOMETA [Concomitant]
     Indication: METASTASES TO BONE
     Dosage: 4 MG, UNK
     Route: 041
     Dates: start: 20060718
  10. ASCOMARNA [Concomitant]
     Dates: start: 20030802, end: 20090917
  11. RINGEREAZE [Concomitant]
     Indication: BREAST CANCER
     Dosage: 120 MG, UNK
     Dates: start: 20080515, end: 20081210
  12. CGS 20267 [Suspect]
     Indication: BREAST CANCER
     Dosage: 2.5 MG
     Route: 048
     Dates: start: 20070613, end: 20090907
  13. URSO 250 [Concomitant]
     Dosage: 300 MG, UNK
     Route: 048
     Dates: start: 20100223
  14. ARIMIDEX [Concomitant]
     Dates: start: 20021107, end: 20050815
  15. HYSRON [Concomitant]
     Dosage: 600 MG, UNK
     Route: 048
     Dates: start: 20090908
  16. NOVAMIN [Concomitant]
     Indication: BREAST CANCER
     Dosage: 15 MG, UNK
     Route: 048
     Dates: start: 20090918, end: 20100304
  17. XELODA [Concomitant]
     Dates: start: 20060113, end: 20070117
  18. AROMASIN [Concomitant]
     Dates: start: 20050816, end: 20070612
  19. NOLVADEX [Concomitant]
     Dates: start: 20020921, end: 20021107
  20. EPI/YTXT [Concomitant]
     Dates: start: 20020805, end: 20020921
  21. DUROTEP [Concomitant]
     Dosage: 4.2G
  22. DEPAS [Concomitant]
     Dosage: 1 MG, UNK
     Route: 048
     Dates: start: 20070322, end: 20090917
  23. DAIO-KANZO-TO [Concomitant]
     Dosage: 7.5 G, UNK
     Route: 048
     Dates: start: 20091116, end: 20100111
  24. DEXAMETHASONE [Concomitant]
     Dosage: 0.5 MG, UNK
     Route: 048
     Dates: start: 20090226, end: 20090917

REACTIONS (11)
  - BONE MARROW FAILURE [None]
  - CIRCULATORY COLLAPSE [None]
  - PYELONEPHRITIS ACUTE [None]
  - SEPSIS [None]
  - METASTASES TO BONE [None]
  - PANCYTOPENIA [None]
  - MENINGISM [None]
  - CEREBRAL ARTERIOSCLEROSIS [None]
  - NEOPLASM MALIGNANT [None]
  - CEREBRAL THROMBOSIS [None]
  - PYREXIA [None]
